FAERS Safety Report 8435788-6 (Version None)
Quarter: 2012Q2

REPORT INFORMATION
  Report Type: 
  Country: None (occurrence: None)
  Receive Date: 20120614
  Receipt Date: 20120604
  Transmission Date: 20120825
  Serious: Yes (Hospitalization, Other)
  Sender: FDA-Public Use
  Company Number: US-ELI_LILLY_AND_COMPANY-US201010006036

PATIENT
  Sex: Female
  Weight: 79.002 kg

DRUGS (18)
  1. FORTEO [Suspect]
     Dosage: 20 UG, QD
  2. FORTEO [Suspect]
     Dosage: 20 UG, QD
  3. FORTEO [Suspect]
     Indication: OSTEOPOROSIS
     Dosage: 20 UG, DAILY (1/D)
     Dates: start: 20101019
  4. PREDNISONE TAB [Concomitant]
  5. FORTEO [Suspect]
     Dosage: 20 UG, QD
  6. FORTEO [Suspect]
     Dosage: 20 UG, QD
  7. ENALAPRIL MALEATE [Concomitant]
     Dosage: 40 MG, QD
  8. CORTISONE ACETATE [Concomitant]
     Indication: ARTHRITIS
  9. TIDACT                             /00166002/ [Concomitant]
  10. FORTEO [Suspect]
     Dosage: 20 UG, QD
  11. FORTEO [Suspect]
     Dosage: 20 UG, QD
  12. CIPROFLOXACIN HCL [Concomitant]
     Dosage: 500 MG, BID
  13. VITAMIN B-12 [Concomitant]
  14. OXYGEN [Concomitant]
  15. VITAMIN D [Concomitant]
  16. PRANDIN [Concomitant]
     Dosage: 2 MG, UNKNOWN
  17. RITUXAN [Concomitant]
     Indication: VASCULITIS
  18. CYCLOPHOSPHAMIDE [Concomitant]
     Indication: VASCULITIS
     Dosage: UNK, OTHER
     Dates: start: 20090101

REACTIONS (11)
  - NAUSEA [None]
  - ARTHRITIS [None]
  - ANAEMIA [None]
  - TACHYCARDIA [None]
  - MALAISE [None]
  - INJECTION SITE PAIN [None]
  - INJECTION SITE HAEMATOMA [None]
  - HOSPITALISATION [None]
  - PLATELET COUNT DECREASED [None]
  - INCREASED TENDENCY TO BRUISE [None]
  - HYPOTENSION [None]
